FAERS Safety Report 9348514 (Version 3)
Quarter: 2013Q3

REPORT INFORMATION
  Report Type: Spontaneous
  Country: FR (occurrence: FR)
  Receive Date: 20130614
  Receipt Date: 20130709
  Transmission Date: 20140515
  Serious: Yes (Hospitalization, Other)
  Sender: FDA-Public Use
  Company Number: FR-TEVA-411789ISR

PATIENT
  Age: 90 Year
  Sex: Female

DRUGS (1)
  1. FUROSEMIDE TEVA 40 MG [Suspect]
     Indication: DYSPNOEA
     Route: 048
     Dates: start: 20130516, end: 20130522

REACTIONS (12)
  - Cardiac failure [Unknown]
  - Respiratory failure [Not Recovered/Not Resolved]
  - Pulmonary embolism [Unknown]
  - Fall [Recovering/Resolving]
  - Femoral neck fracture [Recovering/Resolving]
  - Somnolence [Recovered/Resolved]
  - Dizziness [Recovered/Resolved]
  - Altered state of consciousness [Unknown]
  - Dyspnoea [Unknown]
  - Asthenia [Unknown]
  - Weight decreased [Unknown]
  - Somnolence [Recovered/Resolved]
